FAERS Safety Report 5578569-3 (Version None)
Quarter: 2007Q4

REPORT INFORMATION
  Report Type: 
  Country: None (occurrence: None)
  Receive Date: 20071227
  Receipt Date: 20071219
  Transmission Date: 20080405
  Serious: Yes (Other)
  Sender: FDA-Public Use
  Company Number: 2007SP025138

PATIENT
  Age: 42 Year
  Sex: Female

DRUGS (1)
  1. CELESTONE [Suspect]
     Dosage: 1 DF;ONCE;IA
     Route: 013
     Dates: start: 20070716, end: 20070716

REACTIONS (1)
  - GENITAL HAEMORRHAGE [None]
